FAERS Safety Report 21250658 (Version 1)
Quarter: 2022Q3

REPORT INFORMATION
  Report Type: Report from Study
  Country: US (occurrence: US)
  Receive Date: 20220824
  Receipt Date: 20220824
  Transmission Date: 20221027
  Serious: Yes (Hospitalization, Other)
  Sender: FDA-Public Use
  Company Number: US-ABBVIE-22K-163-4261858-00

PATIENT
  Age: 54 Year
  Sex: Male

DRUGS (1)
  1. HUMIRA [Suspect]
     Active Substance: ADALIMUMAB
     Indication: Ankylosing spondylitis
     Route: 058
     Dates: start: 20210423

REACTIONS (5)
  - Road traffic accident [Unknown]
  - Joint dislocation [Unknown]
  - Arthralgia [Not Recovered/Not Resolved]
  - Incision site discharge [Unknown]
  - Wound complication [Unknown]

NARRATIVE: CASE EVENT DATE: 20220321
